FAERS Safety Report 15131504 (Version 2)
Quarter: 2018Q4

REPORT INFORMATION
  Report Type: Report from Study
  Country: JP (occurrence: JP)
  Receive Date: 20180711
  Receipt Date: 20181204
  Transmission Date: 20190204
  Serious: Yes (Hospitalization, Other)
  Sender: FDA-Public Use
  Company Number: JP-TAKEDA-2018TUS021850

PATIENT
  Age: 79 Year
  Sex: Female
  Weight: 41.8 kg

DRUGS (11)
  1. ATORVASTATIN CALCIUM. [Suspect]
     Active Substance: ATORVASTATIN CALCIUM
     Indication: PRODUCT USED FOR UNKNOWN INDICATION
     Dosage: UNK
     Route: 065
  2. BAYASPIRIN [Concomitant]
     Active Substance: ASPIRIN
     Indication: PRODUCT USED FOR UNKNOWN INDICATION
     Dosage: UNK
     Route: 065
     Dates: end: 20180415
  3. PONATINIB [Suspect]
     Active Substance: PONATINIB
     Indication: ACUTE LYMPHOCYTIC LEUKAEMIA
     Dosage: 45 MG, QD
     Route: 048
     Dates: start: 20170810, end: 20170819
  4. PONATINIB [Suspect]
     Active Substance: PONATINIB
     Dosage: 45 MG, QD
     Route: 048
     Dates: start: 20171229, end: 20180415
  5. PREDNISOLONE. [Concomitant]
     Active Substance: PREDNISOLONE
     Indication: RASH
  6. ALLELOCK [Concomitant]
     Active Substance: OLOPATADINE HYDROCHLORIDE
     Indication: RASH
     Dosage: UNK
     Route: 048
  7. PONATINIB [Suspect]
     Active Substance: PONATINIB
     Dosage: 15 MG, QD
     Route: 048
     Dates: start: 20170822, end: 20170910
  8. PREDNISOLONE. [Concomitant]
     Active Substance: PREDNISOLONE
     Indication: HEPATIC FUNCTION ABNORMAL
     Dosage: 20 MG, QD
     Route: 065
  9. ALLELOCK [Concomitant]
     Active Substance: OLOPATADINE HYDROCHLORIDE
     Indication: HEPATIC FUNCTION ABNORMAL
  10. DIFLUCAN [Concomitant]
     Active Substance: FLUCONAZOLE
     Indication: PROPHYLAXIS
     Dosage: UNK
     Route: 065
     Dates: end: 20180415
  11. PONATINIB [Suspect]
     Active Substance: PONATINIB
     Dosage: 30 MG, QD
     Route: 048
     Dates: start: 20170911, end: 20171228

REACTIONS (2)
  - Rash [Recovered/Resolved]
  - Hepatic function abnormal [Recovered/Resolved]

NARRATIVE: CASE EVENT DATE: 20170818
